FAERS Safety Report 5566867-9 (Version None)
Quarter: 2007Q4

REPORT INFORMATION
  Report Type: 
  Country: None (occurrence: None)
  Receive Date: 20071219
  Receipt Date: 20070221
  Transmission Date: 20080405
  Serious: No
  Sender: FDA-Public Use
  Company Number: US-ABBOTT-07P-163-0360295-00

PATIENT
  Sex: Male

DRUGS (2)
  1. NIMBEX [Suspect]
     Indication: PARALYSIS
     Route: 042
     Dates: start: 20070204
  2. NIMBEX [Suspect]
     Indication: SPINAL FRACTURE

REACTIONS (2)
  - DRUG INEFFECTIVE [None]
  - DYSKINESIA [None]
